FAERS Safety Report 11391593 (Version 2)
Quarter: 2015Q3

REPORT INFORMATION
  Report Type: Spontaneous
  Country: None (occurrence: CN)
  Receive Date: 20150818
  Receipt Date: 20150825
  Transmission Date: 20151125
  Serious: Yes (Other)
  Sender: FDA-Public Use
  Company Number: CN-MERCK KGAA-1041176

PATIENT

DRUGS (1)
  1. NOVOTHYROX [Suspect]
     Active Substance: LEVOTHYROXINE SODIUM

REACTIONS (5)
  - Dizziness [None]
  - Blood thyroid stimulating hormone increased [None]
  - Asthenia [None]
  - Tri-iodothyronine free decreased [None]
  - Anti-thyroid antibody positive [None]
